FAERS Safety Report 8138874-3 (Version None)
Quarter: 2012Q1

REPORT INFORMATION
  Report Type: 
  Country: None (occurrence: None)
  Receive Date: 20120215
  Receipt Date: 20120207
  Transmission Date: 20120608
  Serious: Yes (Death, Other)
  Sender: FDA-Public Use
  Company Number: JP-EISAI INC-E7389-02044-CLI-JP

PATIENT
  Sex: Female
  Weight: 43 kg

DRUGS (3)
  1. HALAVEN [Suspect]
     Route: 041
     Dates: start: 20110907, end: 20110907
  2. CADEX [Concomitant]
  3. HALAVEN [Suspect]
     Indication: METASTASES TO LYMPH NODES
     Route: 041
     Dates: start: 20110817, end: 20110824

REACTIONS (4)
  - NEOPLASM MALIGNANT [None]
  - LEUKOPENIA [None]
  - NEUTROPENIA [None]
  - LYMPHOPENIA [None]
